FAERS Safety Report 9471710 (Version 1)
Quarter: 2013Q3

REPORT INFORMATION
  Report Type: Spontaneous
  Country: GB (occurrence: None)
  Receive Date: 20130819
  Receipt Date: 20130819
  Transmission Date: 20140515
  Serious: Yes (Life-Threatening)
  Sender: FDA-Public Use
  Company Number: GER/UKI/13/0033980

PATIENT
  Age: 60 Year
  Sex: Male
  Weight: 118 kg

DRUGS (6)
  1. PIOGLITAZONE [Suspect]
     Indication: PRODUCT USED FOR UNKNOWN INDICATION
     Route: 048
     Dates: start: 20100705, end: 20130730
  2. ASPIRIN (ACETYLSALICYLIC ACID) [Concomitant]
  3. ATORVASTATIN (ATORVASTATIN) [Concomitant]
  4. DISIPAL (ORPHENADRINE HYDROCHLORIDE) [Concomitant]
  5. GLIMEPIRIDE (GLIMEPIRIDE) [Concomitant]
  6. MODECATE (FLUPHENAZINE DECANOATE) [Concomitant]

REACTIONS (2)
  - Bladder cancer [None]
  - Haematuria [None]
